FAERS Safety Report 10652184 (Version 1)
Quarter: 2014Q4

REPORT INFORMATION
  Report Type: Spontaneous
  Country: CN (occurrence: CN)
  Receive Date: 20141215
  Receipt Date: 20141215
  Transmission Date: 20150529
  Serious: Yes (Life-Threatening)
  Sender: FDA-Public Use
  Company Number: CN-BAXTER-2014BAX071242

PATIENT
  Age: 8 Month
  Sex: Female
  Weight: 8 kg

DRUGS (2)
  1. 5% GLUCOSE  INJECTION [Suspect]
     Active Substance: DEXTROSE
     Indication: MEDICATION DILUTION
     Route: 041
     Dates: start: 20140520, end: 20140526
  2. LIKEWEI [Suspect]
     Active Substance: GANCICLOVIR
     Indication: VARICELLA
     Route: 041
     Dates: start: 20140520, end: 20140526

REACTIONS (2)
  - Seizure [Recovering/Resolving]
  - Infusion related reaction [Recovering/Resolving]

NARRATIVE: CASE EVENT DATE: 20140526
